FAERS Safety Report 5217754-7 (Version None)
Quarter: 2007Q1

REPORT INFORMATION
  Report Type: 
  Country: None (occurrence: None)
  Receive Date: 20061130
  Receipt Date: 20060815
  Transmission Date: 20070707
  Serious: Yes (Hospitalization)
  Sender: FDA-Public Use
  Company Number: US200608004221

PATIENT
  Sex: Female
  Weight: 79.4 kg

DRUGS (4)
  1. ZYPREXA [Suspect]
     Dosage: 10 MG, 2/D, ORAL
     Route: 048
     Dates: start: 20000701, end: 20051101
  2. ZIPRASIDONE HCL [Concomitant]
  3. DIVALPROEX SODIUM [Concomitant]
  4. BUPROPION HCL [Concomitant]

REACTIONS (3)
  - CONVULSION [None]
  - DIABETES MELLITUS [None]
  - DIABETIC COMA [None]
